FAERS Safety Report 7945481-1 (Version None)
Quarter: 2011Q4

REPORT INFORMATION
  Report Type: 
  Country: None (occurrence: None)
  Receive Date: 20111121
  Receipt Date: 20111027
  Transmission Date: 20120403
  Serious: Yes (Hospitalization, Disabling)
  Sender: FDA-Public Use
  Company Number: 2011SP050855

PATIENT
  Age: 25 Year
  Sex: Female

DRUGS (1)
  1. SAPHRIS [Suspect]
     Indication: BIPOLAR I DISORDER
     Dosage: 5 MG; BID; SL
     Route: 060
     Dates: start: 20110901

REACTIONS (3)
  - FALL [None]
  - HYPERTENSION [None]
  - WRIST FRACTURE [None]
